FAERS Safety Report 23180542 (Version 2)
Quarter: 2023Q4

REPORT INFORMATION
  Report Type: Spontaneous
  Country: US (occurrence: US)
  Receive Date: 20231114
  Receipt Date: 20231116
  Transmission Date: 20240110
  Serious: No
  Sender: FDA-Public Use
  Company Number: US-BRISTOL-MYERS SQUIBB COMPANY-2023-162538

PATIENT
  Age: 77 Year
  Sex: Female

DRUGS (1)
  1. LENALIDOMIDE [Suspect]
     Active Substance: LENALIDOMIDE
     Indication: Plasma cell myeloma
     Dosage: TAKE 1 CAPSULE DAILY FOR 14 DAYS ON FOLLOWED BY 7 DAYS OFF
     Route: 048
     Dates: start: 20231103

REACTIONS (3)
  - Hypoaesthesia [Unknown]
  - Nausea [Unknown]
  - Off label use [Unknown]
